FAERS Safety Report 5405285-0 (Version None)
Quarter: 2007Q3

REPORT INFORMATION
  Report Type: 
  Country: None (occurrence: None)
  Receive Date: 20070803
  Receipt Date: 20070727
  Transmission Date: 20080115
  Serious: Yes (Hospitalization)
  Sender: FDA-Public Use
  Company Number: A0667923A

PATIENT
  Age: 76 Year
  Sex: Male
  Weight: 69 kg

DRUGS (4)
  1. SERETIDE [Suspect]
     Indication: ASTHMA
     Dates: start: 20050101
  2. CARDIZEM [Concomitant]
     Dates: start: 19970101
  3. ASPIRIN [Concomitant]
     Dates: start: 19970101
  4. NEXIUM [Concomitant]
     Dates: start: 20070401

REACTIONS (1)
  - DRUG INEFFECTIVE [None]
